FAERS Safety Report 7142572-2 (Version None)
Quarter: 2010Q4

REPORT INFORMATION
  Report Type: 
  Country: None (occurrence: None)
  Receive Date: 20101112
  Receipt Date: 20100809
  Transmission Date: 20110411
  Serious: No
  Sender: FDA-Public Use
  Company Number: 1000015547

PATIENT
  Age: 59 Year
  Sex: Female

DRUGS (1)
  1. SAVELLA [Suspect]

REACTIONS (6)
  - CONSTIPATION [None]
  - DECREASED APPETITE [None]
  - HEADACHE [None]
  - HOT FLUSH [None]
  - HYPERHIDROSIS [None]
  - VOMITING [None]
